FAERS Safety Report 12993645 (Version 1)
Quarter: 2016Q4

REPORT INFORMATION
  Report Type: Spontaneous
  Country: US (occurrence: US)
  Receive Date: 20161201
  Receipt Date: 20161201
  Transmission Date: 20170207
  Serious: Yes (Hospitalization)
  Sender: FDA-Public Use
  Company Number: None

PATIENT
  Age: 85 Year
  Sex: Female
  Weight: 93.1 kg

DRUGS (1)
  1. SOLIFENACIN 5 MG ASTELLA [Suspect]
     Active Substance: SOLIFENACIN
     Indication: URINARY INCONTINENCE
     Dates: start: 20150101, end: 20161109

REACTIONS (2)
  - Urinary tract infection [None]
  - Liver function test increased [None]

NARRATIVE: CASE EVENT DATE: 20161107
